FAERS Safety Report 9645110 (Version 3)
Quarter: 2013Q4

REPORT INFORMATION
  Report Type: Spontaneous
  Country: US (occurrence: US)
  Receive Date: 20131025
  Receipt Date: 20131128
  Transmission Date: 20140711
  Serious: Yes (Hospitalization)
  Sender: FDA-Public Use
  Company Number: US-JNJFOC-20131010088

PATIENT
  Age: 8 Month
  Sex: Male

DRUGS (3)
  1. INFLIXIMAB, RECOMBINANT [Suspect]
     Indication: KAWASAKI^S DISEASE
     Route: 042
  2. ASPIRIN [Suspect]
     Indication: KAWASAKI^S DISEASE
     Route: 065
  3. RANITIDINE [Suspect]
     Indication: PRODUCT USED FOR UNKNOWN INDICATION
     Route: 065

REACTIONS (2)
  - Eosinophilia [Unknown]
  - Off label use [Unknown]
